FAERS Safety Report 9397351 (Version 1)
Quarter: 2013Q3

REPORT INFORMATION
  Report Type: Spontaneous
  Country: US (occurrence: None)
  Receive Date: 20130711
  Receipt Date: 20130711
  Transmission Date: 20140515
  Serious: Yes (Hospitalization)
  Sender: FDA-Public Use
  Company Number: None

PATIENT
  Age: 68 Year
  Sex: Female
  Weight: 47.9 kg

DRUGS (1)
  1. ERBITUX [Suspect]

REACTIONS (4)
  - Renal failure [None]
  - Hypoalbuminaemia [None]
  - Hyperglycaemia [None]
  - Fatigue [None]
